FAERS Safety Report 16830127 (Version 1)
Quarter: 2019Q3

REPORT INFORMATION
  Report Type: Report from Study
  Country: US (occurrence: US)
  Receive Date: 20190919
  Receipt Date: 20190919
  Transmission Date: 20191005
  Serious: Yes (Death)
  Sender: FDA-Public Use
  Company Number: US-ACTELION-A-NJ2019-195603

PATIENT
  Age: 82 Year
  Sex: Male

DRUGS (1)
  1. TRACLEER [Suspect]
     Active Substance: BOSENTAN
     Indication: PULMONARY ARTERIAL HYPERTENSION
     Dosage: 125 MG, BID
     Route: 048
     Dates: start: 20091006, end: 20190815

REACTIONS (2)
  - Pulmonary arterial hypertension [Fatal]
  - Disease complication [Fatal]

NARRATIVE: CASE EVENT DATE: 20190815
